FAERS Safety Report 9019912 (Version 2)
Quarter: 2013Q1

REPORT INFORMATION
  Report Type: Spontaneous
  Country: US (occurrence: US)
  Receive Date: 20130118
  Receipt Date: 20130211
  Transmission Date: 20140127
  Serious: Yes (Hospitalization)
  Sender: FDA-Public Use
  Company Number: US-JNJFOC-20130106131

PATIENT
  Age: 86 None
  Sex: Female

DRUGS (12)
  1. XARELTO [Suspect]
     Indication: THROMBOSIS PROPHYLAXIS
     Route: 048
     Dates: start: 20121121, end: 20130104
  2. XARELTO [Suspect]
     Indication: PULMONARY EMBOLISM
     Route: 048
     Dates: start: 20121121, end: 20130104
  3. UNKNOWN MEDICATION [Concomitant]
     Route: 065
  4. AMLODIPINE [Concomitant]
     Route: 065
  5. BUDESONIDE [Concomitant]
     Route: 065
  6. B-VITAMIN COMPLEX [Concomitant]
     Route: 065
  7. GABAPENTIN [Concomitant]
     Route: 065
  8. GLUCOSAMINE [Concomitant]
     Route: 065
  9. IRON [Concomitant]
     Route: 065
  10. LOSARTAN [Concomitant]
     Route: 065
  11. PERCOCET [Concomitant]
     Route: 065
  12. ZOLPIDEM [Concomitant]
     Route: 065

REACTIONS (2)
  - Anaemia [Recovering/Resolving]
  - Mallory-Weiss syndrome [Recovering/Resolving]
